FAERS Safety Report 12364043 (Version 2)
Quarter: 2016Q3

REPORT INFORMATION
  Report Type: Report from Study
  Country: PL (occurrence: PL)
  Receive Date: 20160512
  Receipt Date: 20160708
  Transmission Date: 20161109
  Serious: Yes (Other)
  Sender: FDA-Public Use
  Company Number: PHHY2016PL063117

PATIENT
  Age: 52 Year
  Sex: Female

DRUGS (4)
  1. LAPATINIB [Suspect]
     Active Substance: LAPATINIB
     Dosage: 1000 MG, QD
     Route: 065
     Dates: start: 20150129, end: 20160420
  2. CAPECITABINE. [Suspect]
     Active Substance: CAPECITABINE
     Indication: BREAST CANCER
     Dosage: 2000 MG/M2, UNK (1 TO 14 DAY IN 21 DAYS CYCLE)
     Route: 065
     Dates: start: 20141023
  3. CAPECITABINE. [Suspect]
     Active Substance: CAPECITABINE
     Dosage: 1500 MG/M2, UNK
     Route: 065
     Dates: end: 20160420
  4. LAPATINIB [Suspect]
     Active Substance: LAPATINIB
     Indication: BREAST CANCER
     Dosage: 1250 MG, QD
     Route: 065
     Dates: start: 20141023

REACTIONS (4)
  - Metastases to liver [Unknown]
  - Transaminases increased [Recovered/Resolved]
  - Paronychia [Unknown]
  - Therapeutic response decreased [Unknown]

NARRATIVE: CASE EVENT DATE: 20150129
